FAERS Safety Report 9921761 (Version 2)
Quarter: 2014Q1

REPORT INFORMATION
  Report Type: Report from Study
  Country: GB (occurrence: GB)
  Receive Date: 20140225
  Receipt Date: 20140317
  Transmission Date: 20141002
  Serious: Yes (Hospitalization)
  Sender: FDA-Public Use
  Company Number: GB-ROCHE-1350059

PATIENT
  Age: 42 Year
  Sex: Female
  Weight: 62.7 kg

DRUGS (25)
  1. PERTUZUMAB [Suspect]
     Indication: HER-2 POSITIVE BREAST CANCER
     Dosage: LOADING DOSE
     Route: 042
     Dates: start: 20131219
  2. PERTUZUMAB [Suspect]
     Dosage: DATE OF LAST DOSE PRIOR TO SERIOUS ADVERSE EVENT (SAE) 30/JAN/2014, MAINTENANCE DOSE
     Route: 042
  3. TRASTUZUMAB [Suspect]
     Indication: HER-2 POSITIVE BREAST CANCER
     Dosage: DATE OF LAST DOSE PRIOR TO SERIOUS ADVERSE EVENT (SAE) 30/JAN/2014
     Route: 042
     Dates: start: 20131219
  4. DOCETAXEL [Suspect]
     Indication: HER-2 POSITIVE BREAST CANCER
     Dosage: DATE OF LAST DOSE PRIOR TO SERIOUS ADVERSE EVENT (SAE) 30/JAN/2014
     Route: 042
     Dates: start: 20131219
  5. FLUOXETINE [Concomitant]
     Route: 065
     Dates: start: 20131113
  6. PIRITON [Concomitant]
     Route: 065
     Dates: start: 20130620, end: 20131218
  7. PIRITON [Concomitant]
     Route: 065
     Dates: start: 20131219
  8. CODEINE LINCTUS [Concomitant]
     Route: 065
     Dates: start: 20131216
  9. DEXAMETHASONE [Concomitant]
     Route: 065
     Dates: start: 20131218
  10. ONDANSETRON [Concomitant]
     Route: 065
     Dates: start: 20131219
  11. RANITIDINE [Concomitant]
     Route: 065
     Dates: start: 20131219
  12. PARACETAMOL [Concomitant]
     Route: 065
     Dates: start: 20131219
  13. IBUPROFEN [Concomitant]
     Route: 065
     Dates: start: 20131219
  14. OMEPRAZOLE [Concomitant]
     Route: 065
     Dates: start: 20131219
  15. METOCLOPRAMIDE [Concomitant]
     Route: 065
     Dates: start: 20131219
  16. LOPERAMIDE [Concomitant]
     Route: 065
     Dates: start: 20131219
  17. ZOPIDONE [Concomitant]
     Route: 065
     Dates: start: 20131227
  18. NITRAZEPAM [Concomitant]
     Route: 065
     Dates: start: 20140114
  19. HYDROCORTISONE [Concomitant]
     Route: 065
     Dates: start: 20140130
  20. CORSODYL MOUTHWASH [Concomitant]
     Route: 065
     Dates: start: 20140208
  21. ARNICA CREAM [Concomitant]
     Route: 065
     Dates: start: 20140129
  22. ARNICA MONTANA [Concomitant]
     Dosage: 30C PILLULES
     Route: 065
     Dates: start: 20140205
  23. ARNICA MONTANA [Concomitant]
     Dosage: 30C TABLETS
     Route: 065
     Dates: start: 20140129
  24. AVEENO BATH [Concomitant]
     Dosage: AVEENO BATH OIL: 22/JAN/2014, AVEENO BODY WASH : 29/JAN/2014, AVINO CREAM:08/JAN/2014
     Route: 065
  25. OILATUM SHOWER EMOLLIENT [Concomitant]
     Dosage: AS REQUIRED;
     Route: 065
     Dates: start: 20140129

REACTIONS (1)
  - Pneumocystis jirovecii infection [Recovered/Resolved]
